FAERS Safety Report 7736819-9 (Version None)
Quarter: 2011Q3

REPORT INFORMATION
  Report Type: 
  Country: None (occurrence: None)
  Receive Date: 20110908
  Receipt Date: 20110908
  Transmission Date: 20111222
  Serious: Yes (Other)
  Sender: FDA-Public Use
  Company Number: None

PATIENT
  Age: 62 Year
  Sex: Female
  Weight: 100.69 kg

DRUGS (1)
  1. HERCEPTIN [Suspect]
     Indication: BREAST CANCER
     Route: 017
     Dates: start: 20100201, end: 20110301

REACTIONS (5)
  - DEPRESSION [None]
  - FATIGUE [None]
  - DYSPNOEA [None]
  - METASTASES TO BONE [None]
  - APNOEA [None]
